FAERS Safety Report 4717191-5 (Version None)
Quarter: 2005Q3

REPORT INFORMATION
  Report Type: 
  Country: None (occurrence: None)
  Receive Date: 20050715
  Receipt Date: 20050704
  Transmission Date: 20060218
  Serious: Yes (Other)
  Sender: FDA-Public Use
  Company Number: 2005-DE-02558GD

PATIENT
  Age: 38 Year
  Sex: Female

DRUGS (11)
  1. SALBUTAMOL (SALBUTAMOL) (LOH) [Suspect]
     Dosage: 5 MG, IH
     Route: 055
  2. LINEZOLID (LINEZOLID) (NR) [Suspect]
     Indication: STAPHYLOCOCCAL INFECTION
     Dosage: 1200 MG, IV
     Route: 042
  3. VENLAFAXINE (VENLAFAXINE) (SEE TEXT) [Suspect]
     Dosage: 300 MG (NR, ONCE DAILY)
  4. BUDESONIDE (BUDESONIDE) (NR) [Concomitant]
  5. HYDROMORPHONE (HYDROMORPHONE) (NR) (HYDROMORPHONE) [Concomitant]
  6. GABAPENTIN [Concomitant]
  7. PANCREATIC ENZYMES (PANCRELIPASE) (NR) [Concomitant]
  8. MULTIVITAMINS (MULTIVITAMINS) (NR) [Concomitant]
  9. MONTELUKAST (MONTELUKAST) (NR) [Concomitant]
  10. COLISTIN (COLISTIN) (NR) [Concomitant]
  11. DORNASE ALPHA (DORNASE ALFA) (NR) [Concomitant]

REACTIONS (10)
  - DRUG TOXICITY [None]
  - DYSKINESIA [None]
  - DYSPNOEA [None]
  - FATIGUE [None]
  - HEADACHE [None]
  - HOT FLUSH [None]
  - NERVOUSNESS [None]
  - SEROTONIN SYNDROME [None]
  - TREMOR [None]
  - TRISMUS [None]
